FAERS Safety Report 20947134 (Version 3)
Quarter: 2022Q3

REPORT INFORMATION
  Report Type: Report from Study
  Country: US (occurrence: US)
  Receive Date: 20220610
  Receipt Date: 20220803
  Transmission Date: 20221027
  Serious: No
  Sender: FDA-Public Use
  Company Number: US-NOVARTISTESTPH-NVSC2022US134221

PATIENT
  Sex: Female

DRUGS (2)
  1. PROMACTA [Suspect]
     Active Substance: ELTROMBOPAG OLAMINE
     Indication: Aplastic anaemia
     Dosage: 75 MG
     Route: 048
  2. PROMACTA [Suspect]
     Active Substance: ELTROMBOPAG OLAMINE
     Dosage: 150 MG
     Route: 048

REACTIONS (6)
  - Product label issue [Unknown]
  - Asthenia [Unknown]
  - Dizziness [Unknown]
  - Platelet count decreased [Unknown]
  - Nausea [Unknown]
  - Drug ineffective [Unknown]
